FAERS Safety Report 10365136 (Version 1)
Quarter: 2014Q3

REPORT INFORMATION
  Report Type: Spontaneous
  Country: US (occurrence: None)
  Receive Date: 20140804
  Receipt Date: 20140804
  Transmission Date: 20150326
  Serious: No
  Sender: FDA-Public Use
  Company Number: None

PATIENT
  Age: 52 Year
  Sex: Female
  Weight: 45.36 kg

DRUGS (1)
  1. KENALOG [Suspect]
     Active Substance: TRIAMCINOLONE ACETONIDE
     Indication: INJECTION SITE INFLAMMATION

REACTIONS (5)
  - Skin atrophy [None]
  - Lipoatrophy [None]
  - Skin irritation [None]
  - Skin hyperpigmentation [None]
  - Skin discolouration [None]

NARRATIVE: CASE EVENT DATE: 20140428
